FAERS Safety Report 17544981 (Version 1)
Quarter: 2020Q1

REPORT INFORMATION
  Report Type: Spontaneous
  Country: DE (occurrence: DE)
  Receive Date: 20200316
  Receipt Date: 20200316
  Transmission Date: 20200409
  Serious: Yes (Disabling)
  Sender: FDA-Public Use
  Company Number: DE-PFIZER INC-2020107772

PATIENT
  Sex: Male

DRUGS (1)
  1. CYTOTEC [Suspect]
     Active Substance: MISOPROSTOL
     Indication: LABOUR INDUCTION
     Dosage: 150 MG, SINGLE (150MG OF CYCTOTEC HAS BEEN ADMINISTERED)
     Route: 064
     Dates: start: 20110802, end: 20110802

REACTIONS (3)
  - Developmental delay [Recovered/Resolved with Sequelae]
  - Foetal exposure during delivery [Unknown]
  - Intellectual disability [Recovered/Resolved with Sequelae]

NARRATIVE: CASE EVENT DATE: 20110802
